FAERS Safety Report 4664808-X (Version None)
Quarter: 2005Q2

REPORT INFORMATION
  Report Type: 
  Country: None (occurrence: None)
  Receive Date: 20050516
  Receipt Date: 20050502
  Transmission Date: 20051028
  Serious: Yes (Death, Hospitalization)
  Sender: FDA-Public Use
  Company Number: 2002123574GB

PATIENT
  Age: 53 Year
  Sex: Male
  Weight: 70.6 kg

DRUGS (9)
  1. DEPO-MEDROL [Suspect]
     Indication: RHEUMATOID ARTHRITIS
     Dosage: 120 MG, INTRAMUSCULAR
     Route: 030
     Dates: start: 20000321, end: 20011227
  2. SOLU-CORTEF [Suspect]
     Indication: ILL-DEFINED DISORDER
     Dosage: INTRAVENOUS
     Route: 042
     Dates: start: 20011101, end: 20011101
  3. METHYLPREDNISOLONE SODIUM SUCCINATE [Suspect]
     Indication: RHEUMATOID ARTHRITIS
     Dosage: INTRAVENOUS
     Route: 042
     Dates: start: 20011201, end: 20011201
  4. PREDNISONE [Suspect]
     Indication: RHEUMATOID ARTHRITIS
     Dosage: 20 MG (20 MG), ORAL
     Route: 048
     Dates: start: 20010306, end: 20010501
  5. LEFLUNOMIDE [Suspect]
     Indication: RHEUMATOID ARTHRITIS
     Dosage: 20 MG (1 IN1 D ), ORAL
     Route: 048
     Dates: start: 20011029, end: 20020101
  6. GOLD (GOLD) [Suspect]
     Indication: ILL-DEFINED DISORDER
     Dosage: (3 IN 1 WK), INTRAMUSCULAR
     Route: 030
     Dates: start: 20020101, end: 20020201
  7. ARTHROTEC [Concomitant]
  8. PARACETAMOL (PARACETAMOL) [Concomitant]
  9. PARAMOL -118 (DIHYDROCODEINE BITARTRATE, PARACETAMOL) [Concomitant]

REACTIONS (5)
  - ASPERGILLOSIS [None]
  - CLUBBING [None]
  - PNEUMONIA PRIMARY ATYPICAL [None]
  - RHEUMATOID ARTHRITIS [None]
  - SEPSIS [None]
